FAERS Safety Report 23869707 (Version 1)
Quarter: 2024Q2

REPORT INFORMATION
  Report Type: Report from Study
  Country: US (occurrence: US)
  Receive Date: 20240517
  Receipt Date: 20240517
  Transmission Date: 20240715
  Serious: No
  Sender: FDA-Public Use
  Company Number: US-SANDOZ-SDZ2024US049552

PATIENT
  Age: 13 Year
  Sex: Female

DRUGS (2)
  1. OMNITROPE [Suspect]
     Active Substance: SOMATROPIN
     Indication: Product used for unknown indication
     Dosage: 10 MG ONCE DAILY
     Route: 030
     Dates: start: 20240312
  2. OMNITROPE [Suspect]
     Active Substance: SOMATROPIN
     Indication: Product used for unknown indication
     Dosage: 10 MG ONCE DAILY
     Route: 030
     Dates: start: 20240312

REACTIONS (2)
  - Drug ineffective [Unknown]
  - Device breakage [Unknown]

NARRATIVE: CASE EVENT DATE: 20240501
